FAERS Safety Report 8817747 (Version 1)
Quarter: 2012Q4

REPORT INFORMATION
  Report Type: 
  Country: DE (occurrence: DE)
  Receive Date: 20121001
  Receipt Date: 20121001
  Transmission Date: 20130627
  Serious: Yes (Other)
  Sender: FDA-Public Use
  Company Number: PHHY2012DE082372

PATIENT
  Age: 49 Year
  Sex: Male

DRUGS (3)
  1. IMATINIB [Suspect]
     Indication: GASTROINTESTINAL STROMAL TUMOUR
     Dosage: 400 mg, daily
  2. IMATINIB [Suspect]
     Dosage: 400 mg, OD
  3. IMATINIB [Suspect]
     Dosage: 400 mg, OD

REACTIONS (1)
  - Hepatic cirrhosis [Not Recovered/Not Resolved]
